FAERS Safety Report 18253376 (Version 4)
Quarter: 2020Q3

REPORT INFORMATION
  Report Type: Spontaneous
  Country: DE (occurrence: DE)
  Receive Date: 20200910
  Receipt Date: 20200917
  Transmission Date: 20201103
  Serious: Yes (Hospitalization)
  Sender: FDA-Public Use
  Company Number: DE-PFIZER INC-2020349954

PATIENT
  Age: 92 Year
  Sex: Female
  Weight: 60 kg

DRUGS (23)
  1. LANTUS [Concomitant]
     Active Substance: INSULIN GLARGINE
     Dosage: 1?0?0 REGULAR INTAKE IN THE MORNING SINCE 2018/ 2019
     Dates: start: 2018
  2. TELMISARTAN. [Concomitant]
     Active Substance: TELMISARTAN
     Indication: HYPERTENSION
     Dosage: 40 MILLIGRAM, Q12H
     Route: 048
  3. PIPAMPERON [Concomitant]
     Active Substance: PIPAMPERONE HYDROCHLORIDE
     Dosage: UNK
  4. VOMEX [Concomitant]
     Active Substance: DIMENHYDRINATE
     Indication: NAUSEA
     Dosage: UNK
  5. LACTULOSE. [Concomitant]
     Active Substance: LACTULOSE
     Indication: CONSTIPATION
     Dosage: 10 MILLILITER, Q8HR
     Dates: start: 2018
  6. GABAPENTIN. [Concomitant]
     Active Substance: GABAPENTIN
     Dosage: 200 MILLIGRAM, QD
     Dates: start: 20200626
  7. TORASEMID [Concomitant]
     Active Substance: TORSEMIDE
     Dosage: UNK
  8. PANTOPRAZOLE [Suspect]
     Active Substance: PANTOPRAZOLE
     Indication: GASTRITIS
     Dosage: 1?0?1
     Route: 048
     Dates: start: 201807
  9. GABAPENTIN. [Concomitant]
     Active Substance: GABAPENTIN
     Dosage: 600 MILLIGRAM, QD
     Dates: start: 20200615, end: 20200619
  10. RISPERIDON [Concomitant]
     Active Substance: RISPERIDONE
     Dosage: UNK
  11. L?THYROXIN [LEVOTHYROXINE SODIUM] [Concomitant]
     Active Substance: LEVOTHYROXINE SODIUM
     Indication: HYPERTHYROIDISM
     Dosage: 1?0?0
     Dates: start: 2007
  12. LORAZEPAM. [Concomitant]
     Active Substance: LORAZEPAM
     Indication: SLEEP DISORDER
     Dosage: UNK, AS NEEDED
  13. ESOMEPRAZOLE MAGNESIUM. [Suspect]
     Active Substance: ESOMEPRAZOLE MAGNESIUM
     Indication: GASTRITIS
     Dosage: 1?0?1
     Route: 048
     Dates: start: 20200607, end: 20200824
  14. BISOPROLOL [Concomitant]
     Active Substance: BISOPROLOL
     Indication: HYPERTENSION
     Dosage: AS NEEDED IN THE EVENING ALSO ONLY 2.5 MG
     Route: 048
  15. APIXABAN [Concomitant]
     Active Substance: APIXABAN
     Dosage: 5 MILLIGRAM, Q12H
  16. APIXABAN [Concomitant]
     Active Substance: APIXABAN
     Dosage: 2.5?0?2.5
     Dates: start: 20200820
  17. ASPIRIN. [Concomitant]
     Active Substance: ASPIRIN
     Indication: ARTERIOSCLEROSIS
     Dosage: 1 DF, 1X/DAY
     Route: 048
     Dates: end: 20200114
  18. SIMVASTATIN. [Concomitant]
     Active Substance: SIMVASTATIN
     Dosage: 0?0?1
     Route: 048
  19. MIRTAZAPIN [Concomitant]
     Active Substance: MIRTAZAPINE
     Dosage: 15 MILLIGRAM
  20. PANTOPRAZOLE [Suspect]
     Active Substance: PANTOPRAZOLE
     Dosage: IN BETWEEN THE DOSE HAS BEEN REDUCED TO 20 MG
     Route: 065
     Dates: end: 20200606
  21. AMLODIPINE [Concomitant]
     Active Substance: AMLODIPINE BESYLATE
     Indication: HYPERTENSION
     Dosage: 5 MILLIGRAM, Q12H
     Route: 048
     Dates: start: 20200825
  22. HCT [Concomitant]
     Active Substance: HYDROCHLOROTHIAZIDE
     Indication: OLIGURIA
     Dosage: 12.5?0?0
  23. TAVOR (LORAZEPAM) [Concomitant]
     Active Substance: LORAZEPAM
     Indication: SLEEP DISORDER
     Dosage: UNK, AS NEEDED

REACTIONS (8)
  - Condition aggravated [Unknown]
  - Anxiety [Unknown]
  - Nausea [Unknown]
  - Restlessness [Unknown]
  - Headache [Unknown]
  - Sleep disorder [Unknown]
  - Heart rate increased [Unknown]
  - Blood creatinine increased [Unknown]

NARRATIVE: CASE EVENT DATE: 201807
